FAERS Safety Report 20666610 (Version 1)
Quarter: 2022Q2

REPORT INFORMATION
  Report Type: Spontaneous
  Country: US (occurrence: US)
  Receive Date: 20220403
  Receipt Date: 20220403
  Transmission Date: 20220721
  Serious: No
  Sender: FDA-Public Use
  Company Number: US-drreddys-SPO/USA/22/0148088

PATIENT
  Age: 41 Year

DRUGS (2)
  1. ACCUTANE [Suspect]
     Active Substance: ISOTRETINOIN
     Indication: Product used for unknown indication
     Dosage: RMA ISSUE DATE: 20/AUGUST/2021 12:00:00 AM, 22/NOVEMBER/2021 12:00:00 AM, 12/JANUARY/2022 03:01:30 P
  2. ACCUTANE [Suspect]
     Active Substance: ISOTRETINOIN
     Dosage: RMA ISSUE DATE: 22/SEPTEMBER/2021 12:00:00 AM, 11/FEBRUARY/2022 01:52:24 PM,

REACTIONS (1)
  - Treatment noncompliance [Unknown]
